FAERS Safety Report 5151144-0 (Version None)
Quarter: 2006Q4

REPORT INFORMATION
  Report Type: 
  Country: None (occurrence: None)
  Receive Date: 20061115
  Receipt Date: 20060928
  Transmission Date: 20070319
  Serious: Yes (Hospitalization)
  Sender: FDA-Public Use
  Company Number: FR-BAYER-200610890BFR

PATIENT
  Age: 76 Year
  Sex: Female
  Weight: 62 kg

DRUGS (19)
  1. CIFLOX [Suspect]
     Indication: PYELONEPHRITIS ACUTE
     Dates: start: 20060810
  2. BACTRIM [Suspect]
     Indication: PYELONEPHRITIS ACUTE
     Dates: start: 20060818, end: 20060831
  3. ROCEPHIN [Suspect]
     Indication: PYELONEPHRITIS ACUTE
     Dates: start: 20060811
  4. CELEBREX [Suspect]
     Indication: UNEVALUABLE EVENT
     Route: 048
     Dates: start: 20060731
  5. DOLIPRANE [Concomitant]
     Indication: PYELONEPHRITIS ACUTE
     Route: 048
     Dates: start: 20060810, end: 20060831
  6. ACTISKENAN [Concomitant]
     Indication: PYELONEPHRITIS ACUTE
     Route: 048
     Dates: start: 20060810
  7. TAHOR [Concomitant]
     Indication: UNEVALUABLE EVENT
  8. AVLOCARDYL [Concomitant]
     Indication: UNEVALUABLE EVENT
  9. DEROXAT [Concomitant]
     Indication: UNEVALUABLE EVENT
  10. FOSAMAX [Concomitant]
     Indication: UNEVALUABLE EVENT
  11. FORLAX [Concomitant]
     Indication: UNEVALUABLE EVENT
  12. OGAST [Concomitant]
     Indication: UNEVALUABLE EVENT
  13. OMEPRAZOLE [Concomitant]
     Indication: UNEVALUABLE EVENT
     Dates: start: 20060831
  14. ACETAMINOPHEN [Concomitant]
     Indication: UNEVALUABLE EVENT
     Dates: start: 20060831
  15. CETIRIZINE HCL [Concomitant]
     Indication: UNEVALUABLE EVENT
     Dates: start: 20060830
  16. NOROXINE (NOROXIN) [Concomitant]
     Indication: UNEVALUABLE EVENT
     Dates: start: 20060830
  17. GYNO-PEVARYL [Concomitant]
     Indication: UNEVALUABLE EVENT
     Dates: start: 20060830
  18. DAKTARIN [Concomitant]
     Indication: UNEVALUABLE EVENT
     Route: 002
     Dates: start: 20060830
  19. KETODERM [Concomitant]
     Indication: UNEVALUABLE EVENT
     Dates: start: 20060830

REACTIONS (6)
  - CONJUNCTIVITIS [None]
  - ERYTHEMA [None]
  - ODYNOPHAGIA [None]
  - ORAL MUCOSAL ERUPTION [None]
  - RASH MACULO-PAPULAR [None]
  - STEVENS-JOHNSON SYNDROME [None]
